FAERS Safety Report 18043816 (Version 2)
Quarter: 2020Q3

REPORT INFORMATION
  Report Type: Spontaneous
  Country: IN (occurrence: IN)
  Receive Date: 20200720
  Receipt Date: 20200730
  Transmission Date: 20201103
  Serious: Yes (Hospitalization, Other)
  Sender: FDA-Public Use
  Company Number: IN-GLENMARK PHARMACEUTICALS-2020GMK048662

PATIENT

DRUGS (1)
  1. CANDID DUSTING POWDER [Suspect]
     Active Substance: CLOTRIMAZOLE
     Indication: FUNGAL INFECTION
     Dosage: UNK, BID (TWICE A DAY) (ON CHEST AND THIGHS)
     Route: 061
     Dates: start: 2020, end: 202007

REACTIONS (5)
  - Fungal infection [Recovering/Resolving]
  - Condition aggravated [Recovering/Resolving]
  - Discomfort [Unknown]
  - Prescription drug used without a prescription [Unknown]
  - Drug ineffective [Unknown]

NARRATIVE: CASE EVENT DATE: 2020
